FAERS Safety Report 5800020-6 (Version None)
Quarter: 2008Q3

REPORT INFORMATION
  Report Type: 
  Country: None (occurrence: None)
  Receive Date: 20080703
  Receipt Date: 20080627
  Transmission Date: 20090109
  Serious: Yes (Death, Life-Threatening, Hospitalization)
  Sender: FDA-Public Use
  Company Number: ES-BRISTOL-MYERS SQUIBB COMPANY-13834957

PATIENT
  Age: 74 Year

DRUGS (4)
  1. CETUXIMAB [Suspect]
     Indication: COLON CANCER
     Dosage: CETUIXIMAB 5MG/ML. THE MOST RECENT INFUSION:13-JUN-2007
     Route: 042
     Dates: start: 20070418, end: 20070613
  2. FLUOROURACIL [Suspect]
     Indication: COLON CANCER
     Dosage: THE MOST RECENT INFUSION:13-JUN-2007
     Route: 042
     Dates: start: 20070418, end: 20070613
  3. FOLINIC ACID [Suspect]
     Indication: COLON CANCER
     Dosage: THE MOST RECENT INFUSION:13-JUN-2007
     Route: 042
     Dates: start: 20070418, end: 20070613
  4. OXALIPLATIN [Suspect]
     Indication: COLON CANCER
     Dosage: THE MOST RECENT INFUSION: 10-APR-2007
     Route: 042
     Dates: start: 20070418, end: 20070516

REACTIONS (3)
  - BACK PAIN [None]
  - BRONCHOPNEUMONIA [None]
  - SEPTIC SHOCK [None]
